FAERS Safety Report 20929682 (Version 1)
Quarter: 2022Q2

REPORT INFORMATION
  Report Type: Spontaneous
  Country: US (occurrence: US)
  Receive Date: 20220608
  Receipt Date: 20220608
  Transmission Date: 20220721
  Serious: No
  Sender: FDA-Public Use
  Company Number: US-PERRIGO-22US003549

PATIENT
  Age: 47 Year
  Sex: Male
  Weight: 97.506 kg

DRUGS (3)
  1. MINOXIDIL [Suspect]
     Active Substance: MINOXIDIL
     Indication: Alopecia
     Dosage: 1/2 CAPFUL, BID
     Route: 061
     Dates: start: 202202, end: 20220215
  2. MINOXIDIL [Suspect]
     Active Substance: MINOXIDIL
     Dosage: 1/2 CAPFUL, QD
     Route: 061
     Dates: start: 202112, end: 202202
  3. FINASTERIDE [Suspect]
     Active Substance: FINASTERIDE
     Indication: Alopecia
     Dosage: ONE TABLET, QD
     Route: 048
     Dates: start: 202112, end: 20220215

REACTIONS (6)
  - Application site rash [Recovered/Resolved]
  - Rash erythematous [Recovered/Resolved]
  - Eye swelling [Recovered/Resolved]
  - Pruritus [Recovered/Resolved]
  - Application site pruritus [Recovered/Resolved]
  - Inappropriate schedule of product administration [Recovered/Resolved]

NARRATIVE: CASE EVENT DATE: 20211201
